FAERS Safety Report 6816361-X (Version None)
Quarter: 2010Q3

REPORT INFORMATION
  Report Type: 
  Country: None (occurrence: None)
  Receive Date: 20100705
  Receipt Date: 20100622
  Transmission Date: 20110219
  Serious: Yes (Other)
  Sender: FDA-Public Use
  Company Number: PHHY2010CA39457

PATIENT

DRUGS (2)
  1. ALISKIREN ALI+ [Suspect]
  2. COUMADIN [Concomitant]

REACTIONS (1)
  - ADENOMATOUS POLYPOSIS COLI [None]
